FAERS Safety Report 17863062 (Version 1)
Quarter: 2020Q2

REPORT INFORMATION
  Report Type: Spontaneous
  Country: ES (occurrence: ES)
  Receive Date: 20200605
  Receipt Date: 20200605
  Transmission Date: 20200714
  Serious: Yes (Other)
  Sender: FDA-Public Use
  Company Number: ES-ABBVIE-20K-144-3432027-00

PATIENT
  Age: 60 Year
  Sex: Female

DRUGS (10)
  1. HIDROXICLOROQUINA [Interacting]
     Active Substance: HYDROXYCHLOROQUINE
     Indication: COVID-19 PNEUMONIA
     Route: 048
     Dates: start: 20200401, end: 20200401
  2. ATORVASTATINA [Concomitant]
     Active Substance: ATORVASTATIN
     Indication: HYPERLIPIDAEMIA
     Route: 048
     Dates: start: 20130628
  3. TELMISARTAN/HIDROCLOROTIAZIDA ALTER [Concomitant]
     Indication: ESSENTIAL HYPERTENSION
     Route: 048
     Dates: start: 20170624
  4. LOPINAVIR/RITONAVIR [Suspect]
     Active Substance: LOPINAVIR\RITONAVIR
     Indication: COVID-19 PNEUMONIA
     Dosage: 200 MG/50 MG COMPRIMIDO
     Route: 048
     Dates: start: 20200404, end: 20200410
  5. HIDROXICLOROQUINA [Interacting]
     Active Substance: HYDROXYCHLOROQUINE
     Route: 048
     Dates: start: 20200402, end: 20200402
  6. AZITROMICINA [Interacting]
     Active Substance: AZITHROMYCIN DIHYDRATE
     Indication: COVID-19 PNEUMONIA
     Route: 065
     Dates: start: 20200401, end: 20200403
  7. LOPINAVIR/RITONAVIR [Interacting]
     Active Substance: LOPINAVIR\RITONAVIR
     Route: 048
     Dates: start: 20200401, end: 20200402
  8. METFORMINA [Concomitant]
     Active Substance: METFORMIN HYDROCHLORIDE
     Indication: TYPE 2 DIABETES MELLITUS
     Dosage: 50 TABLET
     Route: 048
     Dates: start: 20100812
  9. TOCILIZUMAB. [Concomitant]
     Active Substance: TOCILIZUMAB
     Indication: COVID-19 PNEUMONIA
     Dates: start: 20200402
  10. HIDROXICLOROQUINA [Interacting]
     Active Substance: HYDROXYCHLOROQUINE
     Route: 048
     Dates: start: 20200404, end: 20200407

REACTIONS (2)
  - Long QT syndrome [Recovering/Resolving]
  - Hyperbilirubinaemia [Recovering/Resolving]

NARRATIVE: CASE EVENT DATE: 20200403
